FAERS Safety Report 18595365 (Version 1)
Quarter: 2020Q4

REPORT INFORMATION
  Report Type: Spontaneous
  Country: NL (occurrence: NL)
  Receive Date: 20201209
  Receipt Date: 20201209
  Transmission Date: 20210114
  Serious: Yes (Other)
  Sender: FDA-Public Use
  Company Number: NL-009507513-2012NLD003443

PATIENT
  Age: 23 Year
  Sex: Female

DRUGS (2)
  1. PEMBROLIZUMAB. [Suspect]
     Active Substance: PEMBROLIZUMAB
     Indication: SMALL CELL LUNG CANCER
     Dosage: UNK
     Dates: start: 20180912
  2. PEMBROLIZUMAB. [Suspect]
     Active Substance: PEMBROLIZUMAB
     Dosage: UNK
     Dates: start: 2020

REACTIONS (5)
  - Polyarthritis [Unknown]
  - Malignant neoplasm progression [Unknown]
  - Lipase increased [Unknown]
  - Epilepsy [Unknown]
  - Amylase increased [Unknown]

NARRATIVE: CASE EVENT DATE: 201907
